FAERS Safety Report 7096589-7 (Version None)
Quarter: 2010Q4

REPORT INFORMATION
  Report Type: 
  Country: None (occurrence: None)
  Receive Date: 20101111
  Receipt Date: 20101104
  Transmission Date: 20110411
  Serious: Yes (Hospitalization)
  Sender: FDA-Public Use
  Company Number: B0683894A

PATIENT
  Sex: Male

DRUGS (5)
  1. AUGMENTIN '125' [Suspect]
     Indication: CYSTITIS
     Dosage: 1G PER DAY
     Route: 048
     Dates: start: 20101015, end: 20101027
  2. DILTIAZEM [Concomitant]
     Dosage: 240MG PER DAY
     Route: 048
  3. ALFUZOSIN [Concomitant]
     Dosage: 5MG PER DAY
     Route: 048
  4. SINVACOR [Concomitant]
     Dosage: 20MG PER DAY
     Route: 048
  5. ASPIRIN [Concomitant]
     Dosage: 100MG PER DAY
     Route: 048

REACTIONS (2)
  - FACE OEDEMA [None]
  - TONGUE OEDEMA [None]
